FAERS Safety Report 21878748 (Version 2)
Quarter: 2023Q1

REPORT INFORMATION
  Report Type: Spontaneous
  Country: FR (occurrence: FR)
  Receive Date: 20230118
  Receipt Date: 20230223
  Transmission Date: 20230418
  Serious: Yes (Hospitalization)
  Sender: FDA-Public Use
  Company Number: None

PATIENT
  Age: 68 Year
  Sex: Male
  Weight: 44 kg

DRUGS (21)
  1. CARBOPLATIN [Suspect]
     Active Substance: CARBOPLATIN
     Indication: Squamous cell carcinoma of lung
     Dosage: 600 MG, EVERY 3 WEEKS C1D1
     Route: 042
     Dates: start: 20221024
  2. CARBOPLATIN [Suspect]
     Active Substance: CARBOPLATIN
     Dosage: 600 MG, EVERY 3 WEEKS C2D1
     Route: 042
     Dates: start: 20221121
  3. CARBOPLATIN [Suspect]
     Active Substance: CARBOPLATIN
     Dosage: 600 MG, EVERY 3 WEEKS C3D1
     Route: 042
     Dates: start: 20221223
  4. CARBOPLATIN [Suspect]
     Active Substance: CARBOPLATIN
     Dosage: 600 MG, EVERY 3 WEEKS C4D1
     Route: 042
     Dates: start: 20230102
  5. PACLITAXEL [Suspect]
     Active Substance: PACLITAXEL
     Indication: Squamous cell carcinoma of lung
     Dosage: 270 MG, EVERY 3 WEEKS C1D1
     Route: 048
     Dates: start: 20221024
  6. PACLITAXEL [Suspect]
     Active Substance: PACLITAXEL
     Dosage: 270 MG, EVERY 3 WEEKS C2D1
     Route: 048
     Dates: start: 20221121
  7. PACLITAXEL [Suspect]
     Active Substance: PACLITAXEL
     Dosage: 270 MG, EVERY 3 WEEKS C3D1
     Route: 048
     Dates: start: 20221223
  8. PACLITAXEL [Suspect]
     Active Substance: PACLITAXEL
     Dosage: 270 MG, EVERY 3 WEEKS C4D1
     Route: 048
     Dates: start: 20230102
  9. KEYTRUDA [Suspect]
     Active Substance: PEMBROLIZUMAB
     Indication: Squamous cell carcinoma of lung
     Dosage: 200 MG, EVERY 3 WEEKS C1D1
     Route: 042
     Dates: start: 20221024
  10. KEYTRUDA [Suspect]
     Active Substance: PEMBROLIZUMAB
     Dosage: 200 MG, EVERY 3 WEEKS C2D1
     Route: 042
     Dates: start: 20221121
  11. KEYTRUDA [Suspect]
     Active Substance: PEMBROLIZUMAB
     Dosage: 200 MG, EVERY 3 WEEKS C3D1
     Route: 042
     Dates: start: 20221223
  12. KEYTRUDA [Suspect]
     Active Substance: PEMBROLIZUMAB
     Dosage: 200 MG, EVERY 3 WEEKS C4D1
     Route: 042
     Dates: start: 20230102
  13. ALPRAZOLAM [Concomitant]
     Active Substance: ALPRAZOLAM
     Dosage: UNK
  14. ATORVASTATIN [Concomitant]
     Active Substance: ATORVASTATIN
     Dosage: UNK
  15. CLOPIDOGREL [Concomitant]
     Active Substance: CLOPIDOGREL BISULFATE
     Dosage: UNK
  16. BISOPROLOL FUMARATE\PERINDOPRIL ARGININE [Concomitant]
     Active Substance: BISOPROLOL FUMARATE\PERINDOPRIL ARGININE
     Dosage: UNK
  17. DOMPERIDONE [Concomitant]
     Active Substance: DOMPERIDONE
     Dosage: UNK
  18. NOVORAPID [Concomitant]
     Active Substance: INSULIN ASPART
     Dosage: UNK
  19. PREDNISOLONE [Concomitant]
     Active Substance: PREDNISOLONE
     Dosage: UNK
  20. TOUJEO [Concomitant]
     Active Substance: INSULIN GLARGINE
     Dosage: UNK
  21. CHOLECALCIFEROL [Concomitant]
     Active Substance: CHOLECALCIFEROL
     Dosage: UNK

REACTIONS (1)
  - Vascular purpura [Recovered/Resolved]

NARRATIVE: CASE EVENT DATE: 20221205
